FAERS Safety Report 17760390 (Version 1)
Quarter: 2020Q2

REPORT INFORMATION
  Report Type: Spontaneous
  Country: US (occurrence: US)
  Receive Date: 20200508
  Receipt Date: 20200508
  Transmission Date: 20200714
  Serious: Yes (Disabling)
  Sender: FDA-Public Use
  Company Number: None

PATIENT
  Age: 34 Year
  Sex: Male
  Weight: 66.6 kg

DRUGS (6)
  1. ZYRTEC [Concomitant]
     Active Substance: CETIRIZINE HYDROCHLORIDE
  2. MULTIVITAMIN [Concomitant]
     Active Substance: VITAMINS
  3. MESALAMINE (LIALDA) [Concomitant]
  4. NEXIUM [Suspect]
     Active Substance: ESOMEPRAZOLE MAGNESIUM
     Indication: GASTROOESOPHAGEAL REFLUX DISEASE
     Dosage: ?          QUANTITY:1 CAPSULE(S);?
  5. CALCIUM SUPPLEMENTATION [Concomitant]
  6. REMERON [Concomitant]
     Active Substance: MIRTAZAPINE

REACTIONS (4)
  - Osteopenia [None]
  - Musculoskeletal disorder [None]
  - Spinal stenosis [None]
  - Jaw disorder [None]

NARRATIVE: CASE EVENT DATE: 20200101
